FAERS Safety Report 4730748-0 (Version None)
Quarter: 2005Q3

REPORT INFORMATION
  Report Type: 
  Country: None (occurrence: None)
  Receive Date: 20050725
  Receipt Date: 20050518
  Transmission Date: 20060218
  Serious: No
  Sender: FDA-Public Use
  Company Number: USA050598431

PATIENT
  Age: 17 Year
  Sex: Female

DRUGS (2)
  1. STRATTERA [Suspect]
     Indication: ATTENTION DEFICIT/HYPERACTIVITY DISORDER
     Dosage: 18 MG DAY
     Dates: start: 20030101
  2. LEXAPRO [Concomitant]

REACTIONS (7)
  - ABNORMAL DREAMS [None]
  - CONFUSIONAL STATE [None]
  - DISSOCIATION [None]
  - FEELING ABNORMAL [None]
  - MALAISE [None]
  - SOMNOLENCE [None]
  - STOMACH DISCOMFORT [None]
